FAERS Safety Report 25731487 (Version 1)
Quarter: 2025Q3

REPORT INFORMATION
  Report Type: Spontaneous
  Country: US (occurrence: None)
  Receive Date: 20250827
  Receipt Date: 20250827
  Transmission Date: 20251020
  Serious: Yes (Other)
  Sender: FDA-CTU
  Company Number: None

PATIENT
  Age: 4 Year
  Sex: Male
  Weight: 17.1 kg

DRUGS (3)
  1. KIRKLAND SIGNATURE CHILDRENS ALLER TEC [Suspect]
     Active Substance: CETIRIZINE HYDROCHLORIDE
     Indication: Nasopharyngitis
     Dosage: OTHER QUANTITY : 10 MG;?FREQUENCY : AT BEDTIME;?
     Route: 048
     Dates: start: 20250804, end: 20250824
  2. KIRKLAND SIGNATURE CHILDRENS ALLER TEC [Suspect]
     Active Substance: CETIRIZINE HYDROCHLORIDE
     Indication: Urticaria
  3. Epi pen as needed (not taken yet) [Concomitant]

REACTIONS (2)
  - Attention deficit hyperactivity disorder [None]
  - Condition aggravated [None]

NARRATIVE: CASE EVENT DATE: 20250818
